FAERS Safety Report 8285487-9 (Version None)
Quarter: 2012Q2

REPORT INFORMATION
  Report Type: 
  Country: None (occurrence: None)
  Receive Date: 20120413
  Receipt Date: 20111215
  Transmission Date: 20120825
  Serious: No
  Sender: FDA-Public Use
  Company Number: US-ASTRAZENECA-2011SE76224

PATIENT
  Sex: Female
  Weight: 68.5 kg

DRUGS (2)
  1. SINGULAIR [Concomitant]
  2. NEXIUM [Suspect]
     Route: 048

REACTIONS (5)
  - MIGRAINE [None]
  - MUSCULOSKELETAL DISCOMFORT [None]
  - MALAISE [None]
  - COELIAC DISEASE [None]
  - OFF LABEL USE [None]
